FAERS Safety Report 9849868 (Version 2)
Quarter: 2014Q2

REPORT INFORMATION
  Report Type: Spontaneous
  Country: US (occurrence: US)
  Receive Date: 20140128
  Receipt Date: 20140430
  Transmission Date: 20141212
  Serious: Yes (Hospitalization)
  Sender: FDA-Public Use
  Company Number: US-BAYER-2014-011054

PATIENT
  Age: 50 Year
  Sex: Female
  Weight: 74.83 kg

DRUGS (10)
  1. MIRENA [Suspect]
     Indication: CONTRACEPTION
     Dosage: 20 MCG/24HR, CONT
     Route: 015
     Dates: start: 20090325, end: 20130212
  2. MIRENA [Suspect]
     Indication: MENORRHAGIA
  3. CLARITIN [Concomitant]
     Indication: MULTIPLE ALLERGIES
     Dosage: UNK
     Dates: start: 1993
  4. METOPROLOL [Concomitant]
     Dosage: 50 MG, BID
     Route: 048
     Dates: start: 2006
  5. ALBUTEROL [Concomitant]
  6. AZELASTINE [Concomitant]
     Dosage: 137 ?G, U2 SPRAYS EACH NOSTRIL 2 TIMES PER DAY
     Route: 045
  7. CETIRIZINE [Concomitant]
     Dosage: 10 MG, DAILY
  8. HYDROCHLOROTHIAZIDE [Concomitant]
     Dosage: 25 MG, DAILY
     Route: 048
  9. OMEPRAZOLE [Concomitant]
     Dosage: 20 MG, DAILY
     Route: 048
  10. DIFLUCAN [Concomitant]
     Indication: FUNGAL INFECTION

REACTIONS (8)
  - Uterine perforation [None]
  - Gastrointestinal injury [None]
  - Abdominal adhesions [None]
  - Injury [None]
  - Pain [None]
  - Emotional distress [None]
  - Device issue [None]
  - Mental disorder [None]
